FAERS Safety Report 7596590-0 (Version None)
Quarter: 2011Q3

REPORT INFORMATION
  Report Type: 
  Country: None (occurrence: None)
  Receive Date: 20110708
  Receipt Date: 20110624
  Transmission Date: 20111222
  Serious: Yes (Other)
  Sender: FDA-Public Use
  Company Number: TW-RANBAXY-2011RR-45826

PATIENT
  Age: 52 Year
  Sex: Female

DRUGS (4)
  1. ESCITALOPRAM [Suspect]
     Indication: DEPRESSION
  2. DULOXETIME HYDROCHLORIDE [Suspect]
     Indication: DEPRESSION
  3. FLUOXETINE HCL [Suspect]
     Indication: DEPRESSION
  4. SERTRALINE HYDROCHLORIDE [Suspect]
     Indication: DEPRESSION

REACTIONS (5)
  - TREMOR [None]
  - GAIT DISTURBANCE [None]
  - PSYCHOMOTOR HYPERACTIVITY [None]
  - EXTRAPYRAMIDAL DISORDER [None]
  - MUSCLE RIGIDITY [None]
